FAERS Safety Report 23602875 (Version 1)
Quarter: 2024Q1

REPORT INFORMATION
  Report Type: Report from Study
  Country: US (occurrence: US)
  Receive Date: 20240306
  Receipt Date: 20240306
  Transmission Date: 20240409
  Serious: Yes (Other)
  Sender: FDA-Public Use
  Company Number: US-ABBVIE-5661934

PATIENT
  Sex: Male

DRUGS (1)
  1. RINVOQ [Suspect]
     Active Substance: UPADACITINIB
     Indication: Ankylosing spondylitis
     Route: 048
     Dates: start: 20230929

REACTIONS (6)
  - Lower limb fracture [Not Recovered/Not Resolved]
  - Back pain [Not Recovered/Not Resolved]
  - Joint range of motion decreased [Recovering/Resolving]
  - Hypermetropia [Not Recovered/Not Resolved]
  - Medical device implantation [Unknown]
  - Medical device discomfort [Unknown]
